FAERS Safety Report 13381751 (Version 1)
Quarter: 2017Q1

REPORT INFORMATION
  Report Type: Spontaneous
  Country: US (occurrence: US)
  Receive Date: 20170329
  Receipt Date: 20170329
  Transmission Date: 20170429
  Serious: Yes (Hospitalization, Disabling)
  Sender: FDA-Public Use
  Company Number: None

PATIENT
  Age: 36 Year
  Sex: Male
  Weight: 72 kg

DRUGS (5)
  1. TEMAZEPAM. [Concomitant]
     Active Substance: TEMAZEPAM
  2. ADDERALL [Concomitant]
     Active Substance: AMPHETAMINE ASPARTATE\AMPHETAMINE SULFATE\DEXTROAMPHETAMINE SACCHARATE\DEXTROAMPHETAMINE SULFATE
  3. QUETIAPINE. [Suspect]
     Active Substance: QUETIAPINE
     Indication: INSOMNIA
     Dosage: QUANTITY:2 TABLET(S); AT BEDTIME?
     Route: 048
  4. LEVAQUIN [Suspect]
     Active Substance: LEVOFLOXACIN
     Indication: BRONCHITIS
     Dates: start: 20150511, end: 20150515
  5. OXACARBAZIPINE [Concomitant]

REACTIONS (11)
  - Hallucination [None]
  - Fatigue [None]
  - Loss of consciousness [None]
  - Communication disorder [None]
  - Stress [None]
  - Acute psychosis [None]
  - Insomnia [None]
  - Delusion [None]
  - Confusional state [None]
  - Vision blurred [None]
  - Therapy non-responder [None]

NARRATIVE: CASE EVENT DATE: 20151214
